FAERS Safety Report 21508055 (Version 2)
Quarter: 2022Q4

REPORT INFORMATION
  Report Type: Report from Study
  Country: AT (occurrence: AT)
  Receive Date: 20221026
  Receipt Date: 20221214
  Transmission Date: 20230113
  Serious: Yes (Other)
  Sender: FDA-Public Use
  Company Number: AT-ROCHE-3017431

PATIENT
  Age: 48 Year
  Sex: Female
  Weight: 58 kg

DRUGS (49)
  1. PACLITAXEL [Suspect]
     Active Substance: PACLITAXEL
     Indication: HER2 positive breast cancer
     Dosage: MOST RECENT DOSE PRIOR TO AE 12/SEP/2019, THERAPY END DATE : NASK, FREQUENCY TIME : 3 MONTH, UNIT DO
     Dates: start: 20190724
  2. CAPECITABINE [Suspect]
     Active Substance: CAPECITABINE
     Indication: HER2 positive breast cancer
     Dosage: THERAPY END DATE : NASK, MOST RECENT DOSE PRIOR TO AE 09/DEC/2021, FREQUENCY TIME : 4 DAYS,UNIT DOSE
     Dates: start: 20210109
  3. CAPECITABINE [Suspect]
     Active Substance: CAPECITABINE
     Dosage: DURATION : 89 DAYS, UNIT DOSE:500 MG
     Dates: start: 20200923, end: 20201220
  4. FAM-TRASTUZUMAB DERUXTECAN-NXKI [Suspect]
     Active Substance: FAM-TRASTUZUMAB DERUXTECAN-NXKI
     Indication: HER2 positive breast cancer
     Dosage: ,FREQUENCY TIME : 3 WEEKS, UNIT DOSE 5.4 MG/KG, THERAPY END DATE : NASK, MOST RECENT DOSE PRIOR TO A
     Dates: start: 20220110
  5. TRASTUZUMAB [Suspect]
     Active Substance: TRASTUZUMAB
     Indication: HER2 positive breast cancer
     Dosage: FREQUENCY TIME : 3 WEEKS, UNIT DOSE : MG/KG, THERAPY END DATE: NASK, MOST RECENT DOSE PRIOR TO AE 12
     Dates: start: 20190724
  6. PERTUZUMAB [Suspect]
     Active Substance: PERTUZUMAB
     Indication: HER2 positive breast cancer
     Dosage: FREQUENCY TIME: 3 WEEKS, UNIT DOSE: 420 MG, THERAPY END DATE : NASK, MOST RECENT DOSE PRIOR TO AE 12
     Dates: start: 20190724
  7. LAPATINIB [Suspect]
     Active Substance: LAPATINIB
     Indication: HER2 positive breast cancer
     Dosage: DURATION : 97 DAYS, UNIT DOSE : 250 MG,
     Dates: start: 20200923, end: 20201228
  8. LAPATINIB [Suspect]
     Active Substance: LAPATINIB
     Dosage: THERAPY END DATE : NASK, FREQUENCY TIME : 0.25 DAYS, UNIT DOSE: 250 MG, MOST RECENT DOSE PRIOR TO AE
     Dates: start: 20210109
  9. ADO-TRASTUZUMAB EMTANSINE [Suspect]
     Active Substance: ADO-TRASTUZUMAB EMTANSINE
     Indication: HER2 positive breast cancer
     Dosage: DURATION : 218 DAYS,THERAPY END DATE : 3.6 MG/KG,FREQUENCY TIME : 3 WEEKS,
     Dates: start: 20191014, end: 20200518
  10. ADO-TRASTUZUMAB EMTANSINE [Suspect]
     Active Substance: ADO-TRASTUZUMAB EMTANSINE
     Dosage: UNIT DOSE : 2.88 MG/KG, THERAPY END DATE : NASK, FREQUENCY TIME : 3 WEEKS, MOST RECENT DOSE PRIOR TO
     Dates: start: 20200703
  11. CEOLAT [Concomitant]
     Indication: Product used for unknown indication
     Dosage: UNIT DOSE : 1 GM, OTHER UP TO 3 X DAILY 10 ML
     Dates: start: 20190815
  12. LOPERAMIDE HYDROCHLORIDE [Concomitant]
     Active Substance: LOPERAMIDE HYDROCHLORIDE
     Indication: Diarrhoea
     Dosage: PRN
     Dates: start: 20210215
  13. SUCRALAN [Concomitant]
     Indication: Product used for unknown indication
     Dosage: UNIT DOSE : 1 GM, PRN
     Dates: start: 20190701
  14. NEURONTIN [Concomitant]
     Active Substance: GABAPENTIN
     Indication: Product used for unknown indication
     Dosage: DURATION : 1 DAY, FREQUENCY TIME : 0.5 DAYS,UNIT DOSE : 300 MG,
     Dates: start: 201908, end: 201908
  15. ASCORBIC ACID\CALCIUM PHOSPHATE\CHOLECALCIFEROL\CITRIC ACID MONOHYDRAT [Concomitant]
     Active Substance: ASCORBIC ACID\CALCIUM PHOSPHATE\CHOLECALCIFEROL\CITRIC ACID MONOHYDRATE
     Indication: Product used for unknown indication
     Dosage: UNIT DOSE : 500 MG, ONGOING = CHECKED, CALCIDURAN [ASCORBIC ACID;CALCIUM PHOSPHATE;CITRIC ACID;COLEC
     Dates: start: 20190717
  16. POLYETHYLENE GLYCOL 4000 [Concomitant]
     Active Substance: POLYETHYLENE GLYCOL 4000
     Indication: Product used for unknown indication
     Dosage: FREQUENCY TIME : 3 DAYS, UNIT DOSE : 10 MG, ONGOING = CHECKED
     Dates: start: 20190705
  17. PANTOPRAZOLE SODIUM [Concomitant]
     Active Substance: PANTOPRAZOLE SODIUM
     Indication: COVID-19
     Dosage: DURATION : 9 DAYS, FREQUENCY TIME : 1 DAY, UNIT DOSE : 40 MG, ONGOING = CHECKED
     Dates: start: 20210222, end: 20210302
  18. PANTOPRAZOLE SODIUM [Concomitant]
     Active Substance: PANTOPRAZOLE SODIUM
     Dosage: FREQUENCY TIME : 1 DAY, UNIT DOSE : 40 MG, ONGOING = CHECKED
     Dates: start: 20190701
  19. HYDROMORPHONE HYDROCHLORIDE [Concomitant]
     Active Substance: HYDROMORPHONE HYDROCHLORIDE
     Indication: Product used for unknown indication
     Dosage: UNIT DOSE : 1.3 MG, PRN
     Dates: start: 20190716
  20. HYDROMORPHONE HYDROCHLORIDE [Concomitant]
     Active Substance: HYDROMORPHONE HYDROCHLORIDE
     Dosage: DURATION : 440 DAYS, FREQUENCY TIME : 0.5 DAYS,UNIT DOSE : 2 MG,
     Dates: start: 20190716, end: 20200927
  21. HYDROMORPHONE HYDROCHLORIDE [Concomitant]
     Active Substance: HYDROMORPHONE HYDROCHLORIDE
     Dosage: FREQUENCY TIME : 0.5 DAYS, UNIT DOSE: 2 MG
     Dates: start: 20220207
  22. TRAZODONE HYDROCHLORIDE [Concomitant]
     Active Substance: TRAZODONE HYDROCHLORIDE
     Indication: Product used for unknown indication
     Dosage: DURATION : 439 DAYS, FREQUENCY TIME : 1 DAYUNIT DOSE : 150 MG,
     Dates: start: 20190716, end: 20200926
  23. VALACYCLOVIR HYDROCHLORIDE [Concomitant]
     Active Substance: VALACYCLOVIR HYDROCHLORIDE
     Indication: Product used for unknown indication
     Dosage: DURATION : 88 DAYS, FREQUENCY TIME : 1 DAY, UNIT DOSE : 500 MG,
     Dates: start: 20190716, end: 20191011
  24. DEXAMETHASONE [Concomitant]
     Active Substance: DEXAMETHASONE
     Indication: COVID-19
     Dosage: UNIT DOSE : 8 MG, DURATION : 72 DAYS
     Dates: start: 20190705, end: 20190914
  25. DEXAMETHASONE [Concomitant]
     Active Substance: DEXAMETHASONE
     Dosage: DURATION : 2 DAYS
     Dates: start: 20220111, end: 20220112
  26. DEXAMETHASONE [Concomitant]
     Active Substance: DEXAMETHASONE
     Dosage: DURATION : 2 DAYS
     Dates: start: 20220113, end: 20220114
  27. DEXAMETHASONE [Concomitant]
     Active Substance: DEXAMETHASONE
     Dosage: FREQUENCY TIME : 3 WEEKS, UNIT DOSE : 8 MG,
     Dates: start: 20220110
  28. DEXAMETHASONE [Concomitant]
     Active Substance: DEXAMETHASONE
     Dosage: UNIT DOSE : 6 MG, FREQUENCY TIME : 1 DAY, ,DURATION : 3 DAY
     Dates: start: 20210302, end: 20210304
  29. DEXAMETHASONE [Concomitant]
     Active Substance: DEXAMETHASONE
     Dosage: DURATION : 68 DAYS
     Dates: start: 20220115, end: 20220323
  30. DEXAMETHASONE [Concomitant]
     Active Substance: DEXAMETHASONE
     Dosage: DURATION : 71 DAY, UNIT DOSE: 8 MG
     Dates: start: 20190704, end: 20190912
  31. LOVENOX [Concomitant]
     Active Substance: ENOXAPARIN SODIUM
     Indication: COVID-19
     Dosage: DURATION : 4 DAYS,FREQUENCY TIME : 1 DAY, UNIT DOSE : 40 MG,
     Dates: start: 20210302, end: 20210305
  32. ALPRAZOLAM [Concomitant]
     Active Substance: ALPRAZOLAM
     Indication: Product used for unknown indication
     Dosage: UNIT DOSE : 0.5 MG, PRN
     Dates: start: 20190715
  33. OLANZAPINE [Concomitant]
     Active Substance: OLANZAPINE
     Indication: Product used for unknown indication
     Dosage: UNIT DOSE : 10 DAYS, DURATION : 15 DAYS, OTHER 0-0-1/2
     Dates: start: 20190821, end: 20190904
  34. OLANZAPINE [Concomitant]
     Active Substance: OLANZAPINE
     Dosage: UNIT DOSE : 10 MG, DURATION : 389 DAYS, OTHER 0-0-1/2
     Dates: start: 20190904, end: 20200926
  35. ZOFRAN [Concomitant]
     Active Substance: ONDANSETRON HYDROCHLORIDE
     Indication: COVID-19
     Dosage: FREQUENCY TIME : 0.5 DAY, DURATION: 72 DAYS, UNIT DOSE : 8 MG,
     Dates: start: 20190705, end: 20190914
  36. ZOFRAN [Concomitant]
     Active Substance: ONDANSETRON HYDROCHLORIDE
     Dosage: UNIT DOSE : 8 MG, DURATION : 366 DAYS, PRN
     Dates: start: 20190704, end: 20200703
  37. ZOFRAN [Concomitant]
     Active Substance: ONDANSETRON HYDROCHLORIDE
     Dosage: FREQUENCY TIME : 3 WEEKS, UNIT DOSE : 8 MG, ONGOING = CHECKED
     Dates: start: 20220110
  38. ZOFRAN [Concomitant]
     Active Substance: ONDANSETRON HYDROCHLORIDE
     Dosage: FREQUENCY TIME : 1 DAY, DURATION: 1 DAY, UNIT DOSE : 4 MG,
     Dates: start: 20210302, end: 20210302
  39. ZOFRAN [Concomitant]
     Active Substance: ONDANSETRON HYDROCHLORIDE
     Dosage: UNIT DOSE : 8 MG, PRN
     Dates: start: 20190701
  40. AMOXICILLIN\CLAVULANATE POTASSIUM [Concomitant]
     Active Substance: AMOXICILLIN\CLAVULANATE POTASSIUM
     Indication: Influenza
     Dosage: DURATION : 7 DAYS, FREQUENCY TIME : 0.5 DAYS, UNIT DOSE : 875 MG,
     Dates: start: 20200527, end: 20200602
  41. ACETAMINOPHEN [Concomitant]
     Active Substance: ACETAMINOPHEN
     Indication: Product used for unknown indication
     Dosage: UNIT DOSE : 500 MG, PRN
     Dates: start: 20190701
  42. EUTHYROX [Concomitant]
     Active Substance: LEVOTHYROXINE SODIUM
     Indication: Product used for unknown indication
     Dosage: UNIT DOSE : 75 UG, FREQUENCY TIME : 1 DAY
     Dates: end: 201906
  43. EUTHYROX [Concomitant]
     Active Substance: LEVOTHYROXINE SODIUM
     Dosage: DURATION : 455 DAYS, UNIT DOSE : 50 UG, FREQUENCY TIME : 1 DAY
     Dates: start: 20190703, end: 20200929
  44. EUTHYROX [Concomitant]
     Active Substance: LEVOTHYROXINE SODIUM
     Dosage: FREQUENCY TIME : 1DAY, UNIT DOSE : 25 UG, DURATION : 101 DAYS
     Dates: start: 20200930, end: 20210108
  45. DRONABINOL [Concomitant]
     Active Substance: DRONABINOL
     Indication: Product used for unknown indication
     Dosage: DURATION : 751 DAYS, UNIT DOSE : 2.5 %, 2 DROP-2 DROP-2 DROP
     Dates: start: 20190716, end: 20210804
  46. DRONABINOL [Concomitant]
     Active Substance: DRONABINOL
     Dosage: UNIT DOSE : 2.5 %, ONGOING = CHECKED
     Dates: start: 20210705
  47. LENDORM [Concomitant]
     Active Substance: BROTIZOLAM
     Indication: Insomnia
     Dosage: UNIT DOSE : 0.25 MG, PRN
     Dates: start: 20211229
  48. CITALOPRAM [Concomitant]
     Active Substance: CITALOPRAM HYDROBROMIDE
     Indication: Product used for unknown indication
     Dosage: FREQUENCY TIME : 1 DAY, UNIT DOSE : 20 MG, ONGOING = CHECKED
     Dates: start: 20190715
  49. ACETAMINOPHEN [Concomitant]
     Active Substance: ACETAMINOPHEN
     Indication: COVID-19
     Dosage: PRN (AS NEEDED)UNIT DOSE : 1 GM,DURATION : 2 DAY
     Dates: start: 20210302, end: 20210303

REACTIONS (4)
  - Intracranial pressure increased [Recovered/Resolved]
  - Iron deficiency anaemia [Recovered/Resolved]
  - Insomnia [Not Recovered/Not Resolved]
  - Gamma-glutamyltransferase increased [Not Recovered/Not Resolved]

NARRATIVE: CASE EVENT DATE: 20211227
